FAERS Safety Report 25447937 (Version 1)
Quarter: 2025Q2

REPORT INFORMATION
  Report Type: Spontaneous
  Country: PL (occurrence: PL)
  Receive Date: 20250617
  Receipt Date: 20250617
  Transmission Date: 20250716
  Serious: Yes (Other)
  Sender: GILEAD
  Company Number: PL-GILEAD-2025-0717106

PATIENT
  Age: 33 Year
  Sex: Male

DRUGS (4)
  1. BIKTARVY [Suspect]
     Active Substance: BICTEGRAVIR SODIUM\EMTRICITABINE\TENOFOVIR ALAFENAMIDE FUMARATE
     Indication: HIV infection
     Dosage: UNK, QD
     Route: 048
     Dates: start: 202011
  2. DESLORATADINE [Concomitant]
     Active Substance: DESLORATADINE
  3. ALVESCO [Concomitant]
     Active Substance: CICLESONIDE
  4. TYROSOLVEN [Concomitant]

REACTIONS (3)
  - Graves^ disease [Unknown]
  - Weight decreased [Unknown]
  - Sarcoidosis [Recovering/Resolving]

NARRATIVE: CASE EVENT DATE: 20220101
